FAERS Safety Report 8556123-9 (Version None)
Quarter: 2012Q3

REPORT INFORMATION
  Report Type: 
  Country: None (occurrence: None)
  Receive Date: 20120801
  Receipt Date: 20120723
  Transmission Date: 20120928
  Serious: Yes (Hospitalization)
  Sender: FDA-Public Use
  Company Number: MX-GENZYME-FABR-1002529

PATIENT
  Sex: Female
  Weight: 126 kg

DRUGS (10)
  1. FABRAZYME [Suspect]
     Dosage: 1 MG/KG, Q2W
     Route: 042
     Dates: start: 20090115, end: 20100201
  2. TEMPRA [Concomitant]
     Indication: PREMEDICATION
     Dosage: UNK
     Route: 065
  3. AVAPENA [Concomitant]
     Indication: PREMEDICATION
     Dosage: UNK
     Route: 065
  4. FABRAZYME [Suspect]
     Dosage: 0.5 MG/KG, Q2W
     Route: 042
     Dates: start: 20100201, end: 20110101
  5. PYRAZOLONES [Suspect]
     Indication: PRODUCT USED FOR UNKNOWN INDICATION
     Dosage: UNK
     Route: 065
  6. ATENOLOL [Concomitant]
     Indication: PRODUCT USED FOR UNKNOWN INDICATION
     Dosage: 50 MG, UNK
     Route: 065
  7. DIOVAN HCT [Concomitant]
     Indication: PRODUCT USED FOR UNKNOWN INDICATION
     Dosage: 80 MG, UNK
     Route: 065
  8. LEVOFLOXACIN [Suspect]
     Indication: PRODUCT USED FOR UNKNOWN INDICATION
     Dosage: UNK
     Route: 065
  9. FABRAZYME [Suspect]
     Indication: FABRY'S DISEASE
     Dosage: 1 MG/KG, Q2W
     Route: 042
     Dates: start: 20110101
  10. FABRAZYME [Suspect]
     Dosage: 1 MG/KG, Q2W
     Route: 042
     Dates: start: 20080401, end: 20081201

REACTIONS (3)
  - BRONCHOSPASM [None]
  - ISCHAEMIC CARDIOMYOPATHY [None]
  - ANGINA UNSTABLE [None]
